FAERS Safety Report 4755065-4 (Version None)
Quarter: 2005Q3

REPORT INFORMATION
  Report Type: 
  Country: None (occurrence: None)
  Receive Date: 20050829
  Receipt Date: 20050815
  Transmission Date: 20060218
  Serious: Yes (Disabling, Other)
  Sender: FDA-Public Use
  Company Number: 2005AC01238

PATIENT
  Age: 64 Year
  Sex: Male

DRUGS (2)
  1. LISINOPRIL [Suspect]
     Indication: HYPERTENSION
  2. SIMVASTATIN [Concomitant]
     Indication: DYSLIPIDAEMIA

REACTIONS (6)
  - CAROTID ARTERY DISSECTION [None]
  - COUGH [None]
  - DYSPHONIA [None]
  - HYPOGLOSSAL NERVE DISORDER [None]
  - PARESIS CRANIAL NERVE [None]
  - VOCAL CORD PARESIS [None]
